FAERS Safety Report 7706073-2 (Version None)
Quarter: 2011Q3

REPORT INFORMATION
  Report Type: 
  Country: None (occurrence: None)
  Receive Date: 20110824
  Receipt Date: 20110818
  Transmission Date: 20111222
  Serious: Yes (Other)
  Sender: FDA-Public Use
  Company Number: US-PFIZER INC-2011191652

PATIENT
  Sex: Female
  Weight: 70 kg

DRUGS (11)
  1. LATANOPROST [Suspect]
     Indication: GLAUCOMA
     Dosage: UNK
     Dates: start: 20110601, end: 20110801
  2. VITAMIN D [Concomitant]
     Indication: VITAMIN SUPPLEMENTATION
     Dosage: UNK
  3. XALATAN [Suspect]
     Indication: GLAUCOMA
     Dosage: UNK
     Route: 047
     Dates: start: 19960101, end: 20110601
  4. LACTOBACILLUS ACIDOPHILUS [Concomitant]
     Indication: COLITIS ULCERATIVE
     Dosage: UNK
  5. METOPROLOL [Concomitant]
     Indication: CARDIAC DISORDER
     Dosage: UNK
  6. MESALAMINE [Concomitant]
     Indication: COLITIS ULCERATIVE
     Dosage: UNK
  7. WARFARIN [Concomitant]
     Indication: ANTICOAGULANT THERAPY
     Dosage: UNK
  8. HYDROCODONE [Concomitant]
     Indication: PAIN
     Dosage: UNK
  9. TIMOLOL [Concomitant]
     Indication: GLAUCOMA
     Dosage: UNK
  10. GLUCOSAMINE [Concomitant]
     Indication: ARTHROPATHY
     Dosage: UNK
  11. ACETYLSALICYLIC ACID [Concomitant]
     Indication: CARDIAC DISORDER
     Dosage: UNK

REACTIONS (3)
  - EYE PAIN [None]
  - KERATITIS [None]
  - EYE INFLAMMATION [None]
